FAERS Safety Report 6341454-3 (Version None)
Quarter: 2009Q3

REPORT INFORMATION
  Report Type: 
  Country: None (occurrence: None)
  Receive Date: 20090904
  Receipt Date: 20090825
  Transmission Date: 20100115
  Serious: Yes (Hospitalization)
  Sender: FDA-Public Use
  Company Number: FR-SANOFI-SYNTHELABO-A02200902229

PATIENT
  Sex: Female

DRUGS (2)
  1. STILNOX [Suspect]
     Indication: INTENTIONAL OVERDOSE
     Route: 048
     Dates: start: 20090523, end: 20090523
  2. ALCOHOL [Concomitant]
     Indication: INTENTIONAL OVERDOSE
     Dosage: UNK
     Route: 048
     Dates: start: 20090523, end: 20090523

REACTIONS (2)
  - COMA [None]
  - INTENTIONAL OVERDOSE [None]
